FAERS Safety Report 6416792-6 (Version None)
Quarter: 2009Q4

REPORT INFORMATION
  Report Type: 
  Country: None (occurrence: None)
  Receive Date: 20091022
  Receipt Date: 20091013
  Transmission Date: 20100525
  Serious: Yes (Other)
  Sender: FDA-Public Use
  Company Number: GXKR2009US11316

PATIENT

DRUGS (2)
  1. ALENDRONIC ACID (NGX) (ALENDRONIC ACID) [Suspect]
     Dosage: 70 MG, BIW
  2. TAMOXIFEN CITRATE [Concomitant]

REACTIONS (5)
  - ARTHRALGIA [None]
  - FEMUR FRACTURE [None]
  - IMPAIRED HEALING [None]
  - RESORPTION BONE INCREASED [None]
  - STRESS FRACTURE [None]
